FAERS Safety Report 14467335 (Version 1)
Quarter: 2018Q1

REPORT INFORMATION
  Report Type: Spontaneous
  Country: US (occurrence: US)
  Receive Date: 20180130
  Receipt Date: 20180130
  Transmission Date: 20180509
  Serious: No
  Sender: FDA-Public Use
  Company Number: None

PATIENT
  Sex: Male

DRUGS (1)
  1. HUMIRA [Suspect]
     Active Substance: ADALIMUMAB
     Indication: COLITIS ULCERATIVE
     Route: 058
     Dates: start: 20171120

REACTIONS (7)
  - Scab [None]
  - Weight increased [None]
  - Middle insomnia [None]
  - Rash [None]
  - Abdominal distension [None]
  - Hypophagia [None]
  - Gastrooesophageal reflux disease [None]
